FAERS Safety Report 5635373-5 (Version None)
Quarter: 2008Q1

REPORT INFORMATION
  Report Type: 
  Country: None (occurrence: None)
  Receive Date: 20080222
  Receipt Date: 20080215
  Transmission Date: 20080703
  Serious: Yes (Other)
  Sender: FDA-Public Use
  Company Number: BR-PFIZER INC-2008011130

PATIENT
  Sex: Female
  Weight: 94 kg

DRUGS (1)
  1. DETROL [Suspect]
     Indication: URINARY INCONTINENCE
     Route: 048
     Dates: start: 20071201, end: 20071201

REACTIONS (5)
  - AUTOMATIC BLADDER [None]
  - BLADDER DISORDER [None]
  - DYSURIA [None]
  - HYPOTHYROIDISM [None]
  - NEUROGENIC BLADDER [None]
